FAERS Safety Report 7141158-3 (Version None)
Quarter: 2010Q4

REPORT INFORMATION
  Report Type: 
  Country: None (occurrence: None)
  Receive Date: 20101202
  Receipt Date: 20101202
  Transmission Date: 20110411
  Serious: Yes (Life-Threatening, Hospitalization, Other)
  Sender: FDA-Public Use
  Company Number: None

PATIENT
  Age: 53 Year
  Sex: Female
  Weight: 101.6057 kg

DRUGS (26)
  1. PLAVIX [Suspect]
     Indication: CORONARY ARTERY DISEASE
     Dosage: 75 MG 1 TABLET DAILY ORALLY
     Route: 048
     Dates: start: 20090219, end: 20100412
  2. PLAVIX [Suspect]
     Indication: STENT PLACEMENT
     Dosage: 75 MG 1 TABLET DAILY ORALLY
     Route: 048
     Dates: start: 20090219, end: 20100412
  3. ASPIRIN [Concomitant]
  4. PRILOSEC [Concomitant]
  5. TIAZAC [Concomitant]
  6. BUMEX [Concomitant]
  7. K-DUR [Concomitant]
  8. LANOXIN [Concomitant]
  9. IMDUR [Concomitant]
  10. ZOCOR [Concomitant]
  11. XANAX [Concomitant]
  12. MOM [Concomitant]
  13. GLUCOTROL [Concomitant]
  14. GLUCOPHAGE [Concomitant]
  15. HUMULIN INSULIN [Concomitant]
  16. PREDNISONE [Concomitant]
  17. FERROUS SULFATE [Concomitant]
  18. ASCORBIC ACID [Concomitant]
  19. NASONEX [Concomitant]
  20. PREMORIN VAGINAL CREAM [Concomitant]
  21. BYSTOLIC [Concomitant]
  22. LISINOPRIL [Concomitant]
  23. ZERTEC [Concomitant]
  24. MIRSLAX [Concomitant]
  25. GABAPENTIN [Concomitant]
  26. MS CONTIN [Concomitant]

REACTIONS (15)
  - ANAEMIA [None]
  - ANGINA PECTORIS [None]
  - ARTERIOVENOUS MALFORMATION [None]
  - BENIGN INTRACRANIAL HYPERTENSION [None]
  - BLOOD GLUCOSE DECREASED [None]
  - CONFUSIONAL STATE [None]
  - CORONARY ARTERY REOCCLUSION [None]
  - FALL [None]
  - GASTRIC ULCER [None]
  - NO THERAPEUTIC RESPONSE [None]
  - PAIN [None]
  - PRURITUS [None]
  - RASH ERYTHEMATOUS [None]
  - SCRATCH [None]
  - URINARY TRACT INFECTION [None]
